FAERS Safety Report 6284994-8 (Version None)
Quarter: 2009Q3

REPORT INFORMATION
  Report Type: 
  Country: None (occurrence: None)
  Receive Date: 20090723
  Receipt Date: 20090713
  Transmission Date: 20100115
  Serious: No
  Sender: FDA-Public Use
  Company Number: 2009-200581-NL

PATIENT

DRUGS (4)
  1. DANAPAROID SODIUM [Suspect]
     Indication: THROMBOSIS PROPHYLAXIS
     Dosage: DF,
  2. URSODIOL [Concomitant]
  3. TOCOPHERYL ACETATE [Concomitant]
  4. EICOSAPENTAENOIC ACID [Concomitant]

REACTIONS (4)
  - DRUG INEFFECTIVE FOR UNAPPROVED INDICATION [None]
  - HAEMORRHAGE [None]
  - THERAPEUTIC RESPONSE UNEXPECTED [None]
  - VENOOCCLUSIVE DISEASE [None]
